FAERS Safety Report 17047394 (Version 1)
Quarter: 2019Q4

REPORT INFORMATION
  Report Type: Spontaneous
  Country: US (occurrence: US)
  Receive Date: 20191018
  Receipt Date: 20191018
  Transmission Date: 20200122
  Serious: No
  Sender: FDA-Public Use
  Company Number: None

PATIENT
  Age: 63 Year
  Sex: Male
  Weight: 187 kg

DRUGS (2)
  1. PREGABALIN 100MG [Suspect]
     Active Substance: PREGABALIN
     Indication: HYPOAESTHESIA
     Route: 048
     Dates: start: 20190923, end: 20191003
  2. PREGABALIN 100MG [Suspect]
     Active Substance: PREGABALIN
     Indication: PARAESTHESIA
     Route: 048
     Dates: start: 20190923, end: 20191003

REACTIONS (2)
  - Feeling abnormal [None]
  - Adverse drug reaction [None]
